FAERS Safety Report 19249291 (Version 1)
Quarter: 2021Q2

REPORT INFORMATION
  Report Type: Spontaneous
  Country: ES (occurrence: ES)
  Receive Date: 20210512
  Receipt Date: 20210512
  Transmission Date: 20210717
  Serious: Yes (Life-Threatening)
  Sender: FDA-Public Use
  Company Number: NVSC2021ES105968

PATIENT
  Age: 7 Year
  Sex: Male
  Weight: 30.1 kg

DRUGS (1)
  1. KYMRIAH [Suspect]
     Active Substance: TISAGENLECLEUCEL
     Indication: ACUTE LYMPHOCYTIC LEUKAEMIA RECURRENT
     Dosage: UNK (1,2 X 10E6 ? 6,0 X 10E8 CELULAS DISPERSION PARA PERFUSION 1?3 BOLSAS DE PERFUSI?N (1 DOSIS DE T
     Route: 042
     Dates: start: 20210105, end: 20210105

REACTIONS (10)
  - Immune effector cell-associated neurotoxicity syndrome [Recovered/Resolved]
  - Ejection fraction decreased [Recovered/Resolved]
  - Tremor [Recovered/Resolved]
  - Oedema peripheral [Recovered/Resolved]
  - Hypoxia [Recovered/Resolved]
  - Hypotension [Recovered/Resolved]
  - Cytokine release syndrome [Recovered/Resolved]
  - Coagulopathy [Recovered/Resolved]
  - Pyrexia [Recovered/Resolved]
  - Tachycardia [Recovered/Resolved]

NARRATIVE: CASE EVENT DATE: 20210106
